FAERS Safety Report 4496861-0 (Version None)
Quarter: 2004Q4

REPORT INFORMATION
  Report Type: 
  Country: None (occurrence: None)
  Receive Date: 20041109
  Receipt Date: 20041101
  Transmission Date: 20050328
  Serious: Yes (Hospitalization)
  Sender: FDA-Public Use
  Company Number: 384148

PATIENT
  Age: 57 Year
  Sex: Male

DRUGS (9)
  1. CARVEDILOL [Suspect]
     Indication: CARDIAC FAILURE CHRONIC
     Route: 048
     Dates: start: 20030724, end: 20030909
  2. BUFFERIN [Concomitant]
     Dates: start: 19940615
  3. BLOPRESS [Concomitant]
     Dates: start: 20020615
  4. LASIX [Concomitant]
     Dates: start: 19940615
  5. BASEN [Concomitant]
     Dates: start: 20030705
  6. KINEDAK [Concomitant]
     Dates: start: 20030705
  7. WARFARIN SODIUM [Concomitant]
     Dates: start: 20030613
  8. PERSANTIN [Concomitant]
     Dates: start: 20030801
  9. ALLOPURINOL TAB [Concomitant]
     Dates: start: 20030801

REACTIONS (4)
  - CARDIAC FAILURE [None]
  - PLEURAL EFFUSION [None]
  - PULMONARY OEDEMA [None]
  - RESPIRATORY DISORDER [None]
